FAERS Safety Report 14296555 (Version 2)
Quarter: 2018Q1

REPORT INFORMATION
  Report Type: Report from Study
  Country: US (occurrence: BR)
  Receive Date: 20171218
  Receipt Date: 20180102
  Transmission Date: 20180509
  Serious: Yes (Hospitalization)
  Sender: FDA-Public Use
  Company Number: US-SUNOVION-2017SUN005333

PATIENT
  Sex: Female
  Weight: 63 kg

DRUGS (1)
  1. INDACATEROL AND GLYCOPYRROLATE [Suspect]
     Active Substance: GLYCOPYRROLATE\INDACATEROL MALEATE
     Indication: BRONCHITIS CHRONIC
     Dosage: 1 DF, QD, CAPSULE, 110/50 UG, REGIMEN#1
     Route: 055
     Dates: start: 2017, end: 201712

REACTIONS (4)
  - Malaise [Recovered/Resolved]
  - Lung disorder [Recovered/Resolved]
  - Drug ineffective [Unknown]
  - Swelling [Recovered/Resolved]
